FAERS Safety Report 7798827-1 (Version None)
Quarter: 2011Q4

REPORT INFORMATION
  Report Type: 
  Country: None (occurrence: None)
  Receive Date: 20111006
  Receipt Date: 20110922
  Transmission Date: 20120403
  Serious: Yes (Hospitalization)
  Sender: FDA-Public Use
  Company Number: US-JNJFOC-20110911202

PATIENT
  Age: 25 Year
  Sex: Female

DRUGS (7)
  1. PARACETAMOL/ DIPHENHYDRAMINE [Suspect]
     Indication: PRODUCT USED FOR UNKNOWN INDICATION
     Route: 048
  2. OLANZAPINE [Suspect]
     Indication: PRODUCT USED FOR UNKNOWN INDICATION
  3. ETHANOL [Suspect]
     Indication: PRODUCT USED FOR UNKNOWN INDICATION
  4. TRAZODONE HYDROCHLORIDE [Suspect]
     Indication: PRODUCT USED FOR UNKNOWN INDICATION
  5. TRAMADOL HCL [Suspect]
     Indication: PRODUCT USED FOR UNKNOWN INDICATION
  6. LORAZEPAM [Suspect]
     Indication: PRODUCT USED FOR UNKNOWN INDICATION
  7. LEVETIRACETAM [Suspect]
     Indication: PRODUCT USED FOR UNKNOWN INDICATION

REACTIONS (5)
  - VOMITING [None]
  - INTENTIONAL OVERDOSE [None]
  - SOMNOLENCE [None]
  - NAUSEA [None]
  - TACHYCARDIA [None]
